FAERS Safety Report 23598274 (Version 1)
Quarter: 2024Q1

REPORT INFORMATION
  Report Type: Report from Study
  Country: IL (occurrence: IL)
  Receive Date: 20240305
  Receipt Date: 20240305
  Transmission Date: 20240409
  Serious: Yes (Disabling, Other)
  Sender: FDA-Public Use
  Company Number: IL-ABBVIE-5663111

PATIENT
  Sex: Male

DRUGS (1)
  1. SKYRIZI [Suspect]
     Active Substance: RISANKIZUMAB-RZAA
     Indication: Crohn^s disease
     Route: 042
     Dates: start: 20240219

REACTIONS (9)
  - Pain [Not Recovered/Not Resolved]
  - Abdominal pain [Unknown]
  - Pruritus [Unknown]
  - Diarrhoea haemorrhagic [Unknown]
  - Vomiting [Recovering/Resolving]
  - Incorrect dose administered [Unknown]
  - Nausea [Recovering/Resolving]
  - Dizziness [Recovering/Resolving]
  - Feeling abnormal [Unknown]

NARRATIVE: CASE EVENT DATE: 20240201
